FAERS Safety Report 5659643-X (Version None)
Quarter: 2008Q1

REPORT INFORMATION
  Report Type: 
  Country: None (occurrence: None)
  Receive Date: 20080310
  Receipt Date: 20080310
  Transmission Date: 20080703
  Serious: No
  Sender: FDA-Public Use
  Company Number: None

PATIENT
  Age: 50 Year
  Sex: Male
  Weight: 104.3273 kg

DRUGS (1)
  1. VYTORIN [Suspect]
     Indication: BLOOD CHOLESTEROL INCREASED
     Dosage: 10/80 1/DAY PO
     Route: 048
     Dates: start: 20070909, end: 20071022

REACTIONS (4)
  - ARTHRITIS [None]
  - LOSS OF EMPLOYMENT [None]
  - MYOSITIS [None]
  - PAIN [None]
